FAERS Safety Report 10177815 (Version 1)
Quarter: 2014Q2

REPORT INFORMATION
  Report Type: Spontaneous
  Country: US (occurrence: US)
  Receive Date: 20140516
  Receipt Date: 20140516
  Transmission Date: 20141212
  Serious: No
  Sender: FDA-Public Use
  Company Number: US-SA-2013SA105354

PATIENT
  Age: 63 Year
  Sex: Female

DRUGS (6)
  1. APIDRA SOLOSTAR [Suspect]
     Indication: TYPE 2 DIABETES MELLITUS
     Dosage: DOSE- SLIDING SCALE
     Route: 058
     Dates: start: 201304
  2. APIDRA SOLOSTAR [Suspect]
     Indication: TYPE 2 DIABETES MELLITUS
     Dosage: DOSE- SLIDING SCALE
     Route: 058
     Dates: start: 201304
  3. LANTUS SOLOSTAR [Suspect]
     Indication: TYPE 2 DIABETES MELLITUS
     Dosage: TAKEN FROM- 2 YEARS AGO DOSE:50 UNIT(S)
     Route: 051
  4. SOLOSTAR [Concomitant]
     Indication: TYPE 2 DIABETES MELLITUS
  5. SOLOSTAR [Concomitant]
     Indication: TYPE 2 DIABETES MELLITUS
     Dates: start: 201304
  6. SOLOSTAR [Concomitant]
     Indication: TYPE 2 DIABETES MELLITUS
     Dates: start: 201304

REACTIONS (7)
  - Fear [Unknown]
  - Somnolence [Unknown]
  - Blood glucose increased [Unknown]
  - Extra dose administered [Unknown]
  - Incorrect product storage [Unknown]
  - Drug dose omission [Unknown]
  - Drug administration error [Unknown]
